FAERS Safety Report 8380064-3 (Version None)
Quarter: 2012Q2

REPORT INFORMATION
  Report Type: 
  Country: None (occurrence: None)
  Receive Date: 20120523
  Receipt Date: 20120516
  Transmission Date: 20120825
  Serious: Yes (Other)
  Sender: FDA-Public Use
  Company Number: US-GLAXOSMITHKLINE-A0977869A

PATIENT
  Age: 37 Year
  Sex: Male

DRUGS (4)
  1. LOVAZA [Suspect]
     Indication: BLOOD TRIGLYCERIDES INCREASED
     Dosage: 2CAP TWICE PER DAY
     Route: 048
  2. CLARITIN-D 24 HOUR [Concomitant]
  3. PREVACID [Concomitant]
  4. VITAMIN TAB [Concomitant]

REACTIONS (4)
  - HEPATIC FUNCTION ABNORMAL [None]
  - HEADACHE [None]
  - FATIGUE [None]
  - NAUSEA [None]
